FAERS Safety Report 26073314 (Version 1)
Quarter: 2025Q4

REPORT INFORMATION
  Report Type: Spontaneous
  Country: US (occurrence: US)
  Receive Date: 20251121
  Receipt Date: 20251121
  Transmission Date: 20260118
  Serious: No
  Sender: OTSUKA
  Company Number: US-MMM-Otsuka-CIS5BT3Y

PATIENT
  Sex: Male

DRUGS (7)
  1. NUEDEXTA [Suspect]
     Active Substance: DEXTROMETHORPHAN HYDROBROMIDE\QUINIDINE SULFATE
     Indication: Inappropriate affect
     Dosage: UNK
     Route: 065
  2. NUEDEXTA [Suspect]
     Active Substance: DEXTROMETHORPHAN HYDROBROMIDE\QUINIDINE SULFATE
     Indication: Mood swings
  3. NUEDEXTA [Suspect]
     Active Substance: DEXTROMETHORPHAN HYDROBROMIDE\QUINIDINE SULFATE
     Indication: Crying
  4. NUEDEXTA [Suspect]
     Active Substance: DEXTROMETHORPHAN HYDROBROMIDE\QUINIDINE SULFATE
     Indication: Craniocerebral injury
  5. NUEDEXTA [Suspect]
     Active Substance: DEXTROMETHORPHAN HYDROBROMIDE\QUINIDINE SULFATE
     Indication: Headache
  6. SUMATRIPTAN [Concomitant]
     Active Substance: SUMATRIPTAN
     Indication: Headache
     Dosage: UNK
     Route: 065
  7. DEPAKOTE [Concomitant]
     Active Substance: DIVALPROEX SODIUM
     Indication: Epilepsy
     Dosage: UNK
     Route: 065

REACTIONS (2)
  - Drug effective for unapproved indication [Unknown]
  - Inability to afford medication [Unknown]

NARRATIVE: CASE EVENT DATE: 20130101
